FAERS Safety Report 10593886 (Version 2)
Quarter: 2014Q4

REPORT INFORMATION
  Report Type: Spontaneous
  Country: US (occurrence: US)
  Receive Date: 20141119
  Receipt Date: 20141119
  Transmission Date: 20150529
  Serious: Yes (Hospitalization, Disabling, Other)
  Sender: FDA-Public Use
  Company Number: US-009507513-1106USA03841

PATIENT
  Sex: Female

DRUGS (4)
  1. ASPIRIN. [Concomitant]
     Active Substance: ASPIRIN
     Dosage: 84 MG, UNK
     Dates: end: 20080603
  2. BONIVA [Suspect]
     Active Substance: IBANDRONATE SODIUM
     Indication: OSTEOPOROSIS
     Dosage: 150 MG, UNK
     Route: 048
     Dates: start: 2000, end: 2010
  3. FOSAMAX [Suspect]
     Active Substance: ALENDRONATE SODIUM
     Indication: OSTEOPOROSIS
     Dosage: 70 MG, UNK
     Route: 048
     Dates: start: 2000, end: 20100215
  4. PREMARIN [Concomitant]
     Active Substance: ESTROGENS, CONJUGATED
     Dosage: UNK
     Dates: start: 1979, end: 20110712

REACTIONS (41)
  - Concussion [Unknown]
  - Femur fracture [Unknown]
  - Large intestine polyp [Unknown]
  - Drug ineffective [Unknown]
  - Spinal osteoarthritis [Unknown]
  - Dizziness [Unknown]
  - Surgery [Not Recovered/Not Resolved]
  - Anxiety [Unknown]
  - Migraine [Unknown]
  - Hypothyroidism [Unknown]
  - Temporomandibular joint syndrome [Unknown]
  - Weight decreased [Unknown]
  - Atrial fibrillation [Unknown]
  - Post procedural haemorrhage [Unknown]
  - Panic attack [Unknown]
  - Nasal septum deviation [Unknown]
  - Angiopathy [Unknown]
  - Post-traumatic stress disorder [Unknown]
  - Scar [Unknown]
  - Blood cholesterol increased [Unknown]
  - Diarrhoea [Unknown]
  - Dysgeusia [Unknown]
  - Sleep apnoea syndrome [Unknown]
  - Asthma [Unknown]
  - Solar dermatitis [Unknown]
  - Purpura senile [Unknown]
  - Fall [Unknown]
  - Dental caries [Unknown]
  - Fibromyalgia [Unknown]
  - Ecchymosis [Unknown]
  - Influenza like illness [Not Recovered/Not Resolved]
  - Back pain [Unknown]
  - Abdominal distension [Unknown]
  - Oedema peripheral [Unknown]
  - Gastrooesophageal reflux disease [Unknown]
  - Osteonecrosis of jaw [Not Recovered/Not Resolved]
  - Depression [Unknown]
  - Infection [Unknown]
  - Pneumonia [Unknown]
  - Night sweats [Unknown]
  - Constipation [Unknown]

NARRATIVE: CASE EVENT DATE: 2005
